FAERS Safety Report 9271413 (Version 1)
Quarter: 2013Q2

REPORT INFORMATION
  Report Type: Spontaneous
  Country: US (occurrence: US)
  Receive Date: 20130506
  Receipt Date: 20130506
  Transmission Date: 20140414
  Serious: Yes (Other)
  Sender: FDA-Public Use
  Company Number: PHEH2013US009565

PATIENT
  Age: 80 Year
  Sex: Female
  Weight: 90 kg

DRUGS (9)
  1. RECLAST [Suspect]
     Indication: OSTEOPOROSIS POSTMENOPAUSAL
     Dosage: 5 MG, UNK
     Route: 042
     Dates: start: 20110928, end: 201209
  2. PROLIA [Suspect]
     Indication: OSTEOPOROSIS POSTMENOPAUSAL
     Dosage: 60 MG, ONCE EVERY 06 MONTHS
     Route: 058
     Dates: start: 20121105
  3. ALEVE [Concomitant]
  4. METOPROLOL [Concomitant]
  5. ACETYLSALICYLIC ACID [Concomitant]
  6. ARTHROTEC [Concomitant]
  7. AMLODIPINE [Concomitant]
  8. DOXAZOCIN [Concomitant]
  9. FAMOTIDINE [Concomitant]

REACTIONS (5)
  - Jaw disorder [Unknown]
  - Osteonecrosis of jaw [Not Recovered/Not Resolved]
  - Exposed bone in jaw [Unknown]
  - Bone lesion [Unknown]
  - Exostosis of jaw [Unknown]
